FAERS Safety Report 8483607-4 (Version None)
Quarter: 2012Q3

REPORT INFORMATION
  Report Type: 
  Country: None (occurrence: None)
  Receive Date: 20120702
  Receipt Date: 20120629
  Transmission Date: 20120928
  Serious: Yes (Disabling)
  Sender: FDA-Public Use
  Company Number: AU-MERCK-1206USA05287

PATIENT
  Age: 82 Year
  Sex: Female

DRUGS (7)
  1. TAZAC [Concomitant]
     Route: 065
  2. NORSPAN (BUPRENORPHINE) [Concomitant]
     Route: 065
  3. NOROXIN [Suspect]
     Indication: URINARY TRACT INFECTION
     Route: 048
     Dates: start: 20120430, end: 20120509
  4. MOTILIUM [Concomitant]
     Route: 065
  5. RABEPRAZOLE SODIUM [Concomitant]
     Route: 065
  6. NORMACOL (STERCULIA) [Concomitant]
     Dosage: IN WATER
     Route: 065
  7. OXYCODONE HCL [Concomitant]
     Indication: BREAKTHROUGH PAIN
     Route: 065

REACTIONS (3)
  - DIARRHOEA [None]
  - ABDOMINAL PAIN UPPER [None]
  - FEELING ABNORMAL [None]
